FAERS Safety Report 13802189 (Version 11)
Quarter: 2019Q1

REPORT INFORMATION
  Report Type: Report from Study
  Country: US (occurrence: US)
  Receive Date: 20170727
  Receipt Date: 20190318
  Transmission Date: 20190417
  Serious: Yes (Death, Life-Threatening, Hospitalization, Other)
  Sender: FDA-Public Use
  Company Number: US-ACTELION-A-NJ2017-151411

PATIENT
  Age: 49 Year
  Sex: Female
  Weight: 61.68 kg

DRUGS (8)
  1. OPSUMIT [Suspect]
     Active Substance: MACITENTAN
     Indication: PULMONARY HYPERTENSION
     Dosage: 10 MG, QD
     Route: 048
     Dates: start: 20170228, end: 20180710
  2. WARFARIN [Concomitant]
     Active Substance: WARFARIN
  3. BUMEX [Concomitant]
     Active Substance: BUMETANIDE
     Dosage: UNK
     Dates: start: 20171222
  4. DIGOXIN. [Concomitant]
     Active Substance: DIGOXIN
     Dosage: UNK
     Dates: start: 20171222
  5. SILDENAFIL. [Concomitant]
     Active Substance: SILDENAFIL
     Dosage: UNK
     Dates: start: 20171222
  6. REMODULIN [Concomitant]
     Active Substance: TREPROSTINIL
  7. UPTRAVI [Suspect]
     Active Substance: SELEXIPAG
     Indication: PULMONARY HYPERTENSION
     Dosage: 1600 MCG, BID
     Route: 048
  8. ESOMEPRAZOLE. [Concomitant]
     Active Substance: ESOMEPRAZOLE MAGNESIUM
     Dosage: UNK
     Dates: start: 20170722

REACTIONS (24)
  - Oesophagitis [Recovered/Resolved]
  - Weight increased [Recovered/Resolved]
  - Weight decreased [Recovered/Resolved]
  - Ventricular fibrillation [Fatal]
  - Scleroderma [Recovered/Resolved with Sequelae]
  - Dysphagia [Recovered/Resolved]
  - Oesophageal stenosis [Recovered/Resolved]
  - Cough [Unknown]
  - Skin tightness [Not Recovered/Not Resolved]
  - Restrictive pulmonary disease [Recovered/Resolved with Sequelae]
  - Upper respiratory tract infection [Unknown]
  - Dyspnoea [Recovered/Resolved]
  - Pulmonary arterial hypertension [Unknown]
  - Cardiac arrest [Fatal]
  - Vomiting [Recovered/Resolved]
  - Disease progression [Unknown]
  - Blood lactic acid increased [Unknown]
  - Pulse absent [Fatal]
  - Pyrexia [Unknown]
  - Cardiac failure acute [Recovered/Resolved]
  - Pulmonary function test abnormal [Recovered/Resolved with Sequelae]
  - Condition aggravated [Recovered/Resolved with Sequelae]
  - Fatigue [Unknown]
  - Syncope [Unknown]

NARRATIVE: CASE EVENT DATE: 20170307
